FAERS Safety Report 7712601-3 (Version None)
Quarter: 2011Q3

REPORT INFORMATION
  Report Type: 
  Country: None (occurrence: None)
  Receive Date: 20110826
  Receipt Date: 20110823
  Transmission Date: 20111222
  Serious: Yes (Death)
  Sender: FDA-Public Use
  Company Number: FR-CEPHALON-2011004429

PATIENT
  Sex: Female
  Weight: 62 kg

DRUGS (3)
  1. TRISENOX [Suspect]
     Route: 041
     Dates: start: 20110712
  2. CYTARABINE [Suspect]
     Route: 042
     Dates: start: 20110712
  3. IDARUBICIN HCL [Suspect]
     Route: 042
     Dates: start: 20110712

REACTIONS (3)
  - PETECHIAE [None]
  - TOXIC ENCEPHALOPATHY [None]
  - INFECTION [None]
